FAERS Safety Report 7396511 (Version 3)
Quarter: 2013Q2

REPORT INFORMATION
  Report Type: Report from Study
  Country: NL (occurrence: NL)
  Receive Date: 20100521
  Receipt Date: 20130514
  Transmission Date: 20140414
  Serious: Yes (Death, Hospitalization)
  Sender: FDA-Public Use
  Company Number: PHHO2009NL14327

PATIENT
  Age: 54 Year
  Sex: Male
  Weight: 87.8 kg

DRUGS (5)
  1. AEB071 [Suspect]
     Indication: RENAL TRANSPLANT
     Dosage: 300 MG, BID
     Route: 048
     Dates: start: 20090909
  2. AEB071 [Suspect]
     Dosage: 200 MG, BID
     Route: 048
     Dates: start: 20091103
  3. CERTICAN [Suspect]
     Indication: RENAL TRANSPLANT
     Dosage: UNK
     Dates: start: 20090909
  4. PREDNISOLONE [Suspect]
  5. ASPIRIN ^BAYER^ [Concomitant]

REACTIONS (15)
  - Epstein-Barr virus infection [Unknown]
  - Pulmonary embolism [Fatal]
  - Deep vein thrombosis [Fatal]
  - Pain in extremity [Fatal]
  - Chest pain [Fatal]
  - Dyspnoea [Fatal]
  - Pericardial effusion [Fatal]
  - Cardiomegaly [Fatal]
  - Pulmonary congestion [Fatal]
  - Arteriosclerosis coronary artery [Fatal]
  - Cardiac tamponade [Fatal]
  - Painful respiration [Fatal]
  - Tachycardia [Fatal]
  - Cardio-respiratory arrest [Fatal]
  - Lung consolidation [Unknown]
